FAERS Safety Report 6856855-4 (Version None)
Quarter: 2010Q3

REPORT INFORMATION
  Report Type: 
  Country: None (occurrence: None)
  Receive Date: 20100719
  Receipt Date: 20100716
  Transmission Date: 20110219
  Serious: Yes (Death, Hospitalization, Other)
  Sender: FDA-Public Use
  Company Number: US-BRISTOL-MYERS SQUIBB COMPANY-15190903

PATIENT
  Age: 58 Year
  Sex: Female

DRUGS (1)
  1. ORENCIA [Suspect]
     Indication: RHEUMATOID ARTHRITIS
     Dosage: DOSE INCREASED TO 4 VIALS (1000MG) EVERY 4 WKS 15DEC09
     Route: 042
     Dates: start: 20060601

REACTIONS (4)
  - COCCIDIOIDOMYCOSIS [None]
  - DEATH [None]
  - HERPES VIRUS INFECTION [None]
  - WEIGHT INCREASED [None]
